FAERS Safety Report 6687873-7 (Version None)
Quarter: 2010Q2

REPORT INFORMATION
  Report Type: 
  Country: None (occurrence: None)
  Receive Date: 20100420
  Receipt Date: 20100409
  Transmission Date: 20101027
  Serious: Yes (Other)
  Sender: FDA-Public Use
  Company Number: US-NOVOPROD-306901

PATIENT
  Sex: Male
  Weight: 99.773 kg

DRUGS (1)
  1. NOVOLOG [Suspect]
     Indication: TYPE 1 DIABETES MELLITUS
     Dosage: UNKNOWN
     Route: 058
     Dates: start: 20040101

REACTIONS (2)
  - HYPOGLYCAEMIC UNCONSCIOUSNESS [None]
  - ROAD TRAFFIC ACCIDENT [None]
